FAERS Safety Report 7904336-9 (Version None)
Quarter: 2011Q4

REPORT INFORMATION
  Report Type: 
  Country: None (occurrence: None)
  Receive Date: 20111109
  Receipt Date: 20111101
  Transmission Date: 20120403
  Serious: Yes (Death, Life-Threatening, Hospitalization, Other)
  Sender: FDA-Public Use
  Company Number: US-ACTELION-A-US2011-54185

PATIENT

DRUGS (14)
  1. OXYGEN [Concomitant]
  2. REVATIO [Concomitant]
  3. TRACLEER [Suspect]
     Indication: PULMONARY ARTERIAL HYPERTENSION
     Dosage: 125 MG, BID
     Route: 048
     Dates: start: 20101124, end: 20111009
  4. REVATIO [Concomitant]
  5. PREDNISONE [Concomitant]
  6. SPIRIVA [Concomitant]
  7. POTASSIUM CHLORIDE [Concomitant]
  8. LASIX [Concomitant]
  9. LEVAQUIN [Concomitant]
  10. NORVASC [Concomitant]
  11. VENTAVIS [Suspect]
     Indication: PULMONARY ARTERIAL HYPERTENSION
     Dosage: UNK
     Route: 055
     Dates: start: 20111005
  12. CELEXA [Concomitant]
  13. LORCET-HD [Concomitant]
  14. DUONEB [Concomitant]

REACTIONS (8)
  - CHRONIC OBSTRUCTIVE PULMONARY DISEASE [None]
  - HYPOXIA [None]
  - EMPHYSEMA [None]
  - OXYGEN SATURATION ABNORMAL [None]
  - PULMONARY ARTERIAL HYPERTENSION [None]
  - DYSPNOEA [None]
  - PNEUMONIA [None]
  - RESPIRATORY FAILURE [None]
